FAERS Safety Report 22278403 (Version 1)
Quarter: 2023Q2

REPORT INFORMATION
  Report Type: Report from Study
  Country: CA (occurrence: CA)
  Receive Date: 20230503
  Receipt Date: 20230503
  Transmission Date: 20230722
  Serious: Yes (Other)
  Sender: FDA-Public Use
  Company Number: CA-CELLTRION INC.-2022CA022231

PATIENT

DRUGS (1)
  1. TRUXIMA [Suspect]
     Active Substance: RITUXIMAB-ABBS
     Indication: Nephrotic syndrome
     Dosage: 550 MILLIGRAM (375 MG/M2 DOSE)
     Dates: start: 202204

REACTIONS (4)
  - Nephrotic syndrome [Unknown]
  - Insurance issue [Unknown]
  - Inability to afford medication [Unknown]
  - Off label use [Unknown]
